FAERS Safety Report 13259250 (Version 4)
Quarter: 2017Q2

REPORT INFORMATION
  Report Type: Report from Study
  Country: JP (occurrence: JP)
  Receive Date: 20170222
  Receipt Date: 20170410
  Transmission Date: 20170830
  Serious: Yes (Hospitalization, Other)
  Sender: FDA-Public Use
  Company Number: JP-TEVA-741856ISR

PATIENT
  Age: 74 Year
  Sex: Male
  Weight: 66.1 kg

DRUGS (9)
  1. RASAGILINE MESILATE [Suspect]
     Active Substance: RASAGILINE MESYLATE
     Dosage: DB RASAGILINE OR PLACEBO
     Route: 048
     Dates: start: 20160311
  2. ANOPROLIN TABLETS [Suspect]
     Active Substance: ALLOPURINOL
     Indication: HYPERURICAEMIA
     Route: 048
  3. MOHRUS TAPE L [Suspect]
     Active Substance: KETOPROFEN
     Indication: BACK PAIN
     Dosage: TAPE (INCLUDING POULTICE)
     Route: 062
  4. NIZORAL [Suspect]
     Active Substance: KETOCONAZOLE
     Indication: DERMATOPHYTOSIS OF NAIL
     Route: 062
     Dates: start: 20160804
  5. RASAGILINE MESILATE [Suspect]
     Active Substance: RASAGILINE MESYLATE
     Dosage: RUN-IN PERIOD PLACEBO
     Route: 048
     Dates: start: 20160225
  6. ALLELOCK [Suspect]
     Active Substance: OLOPATADINE HYDROCHLORIDE
     Indication: URTICARIA
     Route: 048
  7. URINMET [Suspect]
     Active Substance: POTASSIUM CITRATE\SODIUM CITRATE
     Dosage: 2 DOSAGE FORMS DAILY;
     Route: 048
  8. RASAGILINE MESILATE [Suspect]
     Active Substance: RASAGILINE MESYLATE
     Indication: PARKINSON^S DISEASE
     Dosage: 1 MILLIGRAM DAILY; OL EXTENSION ONGOING
     Route: 048
     Dates: start: 20160918, end: 20170303
  9. CATLEP [Suspect]
     Active Substance: INDOMETHACIN
     Indication: BACK PAIN
     Dosage: POULTICE
     Route: 062

REACTIONS (1)
  - Prostate cancer [Not Recovered/Not Resolved]

NARRATIVE: CASE EVENT DATE: 20170125
